FAERS Safety Report 16909268 (Version 1)
Quarter: 2019Q4

REPORT INFORMATION
  Report Type: Spontaneous
  Country: US (occurrence: US)
  Receive Date: 20191011
  Receipt Date: 20191011
  Transmission Date: 20200122
  Serious: Yes (Hospitalization)
  Sender: FDA-Public Use
  Company Number: US-PERRIGO-19US012056

PATIENT
  Age: 32 Year
  Sex: Male

DRUGS (1)
  1. LOPERAMIDE HYDROCHLORIDE. [Suspect]
     Active Substance: LOPERAMIDE HYDROCHLORIDE
     Indication: WITHDRAWAL SYNDROME
     Dosage: 500 MG, UNK
     Route: 048

REACTIONS (4)
  - Overdose [Recovered/Resolved with Sequelae]
  - Multiple organ dysfunction syndrome [Recovered/Resolved with Sequelae]
  - Respiratory failure [Recovered/Resolved]
  - Rhabdomyolysis [Recovered/Resolved with Sequelae]
